FAERS Safety Report 4362754-2 (Version None)
Quarter: 2004Q2

REPORT INFORMATION
  Report Type: 
  Country: None (occurrence: None)
  Receive Date: 20040518
  Receipt Date: 20040428
  Transmission Date: 20050107
  Serious: Yes (Life-Threatening)
  Sender: FDA-Public Use
  Company Number: 20040500292

PATIENT
  Age: 70 Year
  Sex: Female

DRUGS (5)
  1. ROBINUL [Suspect]
     Indication: NEUROMUSCULAR BLOCKADE REVERSAL
     Dates: start: 20040101, end: 20040101
  2. ROBINUL [Suspect]
     Indication: NEUROMUSCULAR BLOCKADE REVERSAL
     Dates: start: 20040101, end: 20040101
  3. ROBINUL [Suspect]
     Indication: NEUROMUSCULAR BLOCKADE REVERSAL
     Dates: start: 20040101, end: 20040101
  4. FENTANYL [Concomitant]
  5. NEOSTIGMINE [Concomitant]

REACTIONS (3)
  - BRADYCARDIA [None]
  - CARDIAC ARREST [None]
  - PARADOXICAL DRUG REACTION [None]
